FAERS Safety Report 8495332-4 (Version None)
Quarter: 2012Q3

REPORT INFORMATION
  Report Type: 
  Country: None (occurrence: None)
  Receive Date: 20120709
  Receipt Date: 20120627
  Transmission Date: 20120928
  Serious: Yes (Other)
  Sender: FDA-Public Use
  Company Number: JP-ASTRAZENECA-2012SE45464

PATIENT
  Age: 23 Year
  Sex: Female

DRUGS (8)
  1. LONASEN [Concomitant]
     Route: 048
  2. GASMOTIN [Concomitant]
     Route: 048
  3. SEPAZON [Concomitant]
     Route: 048
  4. ABILIFY [Concomitant]
     Route: 048
  5. SEROQUEL [Suspect]
     Indication: SCHIZOPHRENIA
     Route: 048
     Dates: start: 20120601
  6. PROMETHAZINE HCL [Concomitant]
  7. ESTAZOLAM [Concomitant]
     Route: 048
  8. TASMOLIN [Concomitant]

REACTIONS (2)
  - DEPRESSED LEVEL OF CONSCIOUSNESS [None]
  - INTENTIONAL DRUG MISUSE [None]
